FAERS Safety Report 25425617 (Version 2)
Quarter: 2025Q3

REPORT INFORMATION
  Report Type: Spontaneous
  Country: US (occurrence: US)
  Receive Date: 20250611
  Receipt Date: 20250721
  Transmission Date: 20251020
  Serious: No
  Sender: BRISTOL-MYERS SQUIBB COMPANY
  Company Number: US-BRISTOL-MYERS SQUIBB COMPANY-2025-083224

PATIENT
  Age: 56 Year
  Sex: Female

DRUGS (1)
  1. REVLIMID [Suspect]
     Active Substance: LENALIDOMIDE
     Indication: Plasma cell myeloma
     Route: 048
     Dates: start: 202203

REACTIONS (6)
  - Laboratory test abnormal [Unknown]
  - Neutrophil count decreased [Unknown]
  - Vomiting projectile [Unknown]
  - Nasopharyngitis [Recovered/Resolved]
  - Illness [Unknown]
  - Chills [Unknown]

NARRATIVE: CASE EVENT DATE: 20250601
